FAERS Safety Report 13192552 (Version 1)
Quarter: 2017Q1

REPORT INFORMATION
  Report Type: Spontaneous
  Country: US (occurrence: US)
  Receive Date: 20170207
  Receipt Date: 20170207
  Transmission Date: 20170428
  Serious: Yes (Hospitalization)
  Sender: FDA-Public Use
  Company Number: None

PATIENT
  Age: 63 Year
  Sex: Male
  Weight: 84.6 kg

DRUGS (5)
  1. LISINOPRIL HCTZ [Suspect]
     Active Substance: HYDROCHLOROTHIAZIDE\LISINOPRIL
     Indication: HYPERTENSION
     Dosage: ?          QUANTITY:1 TABLET(S);?
     Route: 048
     Dates: end: 20170204
  2. VALACYCLOVIR [Concomitant]
     Active Substance: VALACYCLOVIR HYDROCHLORIDE
  3. LIDODERM [Concomitant]
     Active Substance: LIDOCAINE
  4. VOLTAREN [Concomitant]
     Active Substance: DICLOFENAC SODIUM
  5. LOW DOSAGE ASPIRIN [Concomitant]

REACTIONS (4)
  - Pharyngeal oedema [None]
  - Dyspnoea [None]
  - Speech disorder [None]
  - Dysphagia [None]

NARRATIVE: CASE EVENT DATE: 20170204
